FAERS Safety Report 11168539 (Version 1)
Quarter: 2015Q2

REPORT INFORMATION
  Report Type: Spontaneous
  Country: US (occurrence: US)
  Receive Date: 20150605
  Receipt Date: 20150605
  Transmission Date: 20150821
  Serious: Yes (Other)
  Sender: FDA-Public Use
  Company Number: US-PFIZER INC-2015189087

PATIENT
  Sex: Female
  Weight: 87 kg

DRUGS (4)
  1. SKELAXIN [Suspect]
     Active Substance: METAXALONE
     Indication: MUSCLE SPASMS
  2. SKELAXIN [Suspect]
     Active Substance: METAXALONE
     Indication: NEURALGIA
  3. SKELAXIN [Suspect]
     Active Substance: METAXALONE
     Indication: MUSCLE RELAXANT THERAPY
  4. SKELAXIN [Suspect]
     Active Substance: METAXALONE
     Indication: FIBROMYALGIA
     Dosage: AT UNKNOWN DOSE OFF AND ON WHEN NEEDED

REACTIONS (2)
  - Malaise [Unknown]
  - Pulmonary fibrosis [Unknown]
